FAERS Safety Report 7983134-4 (Version None)
Quarter: 2011Q4

REPORT INFORMATION
  Report Type: 
  Country: None (occurrence: None)
  Receive Date: 20111215
  Receipt Date: 20111202
  Transmission Date: 20120403
  Serious: Yes (Hospitalization)
  Sender: FDA-Public Use
  Company Number: DE-MYLANLABS-2011S1025069

PATIENT
  Age: 75 Year
  Sex: Male

DRUGS (7)
  1. DIGITOXIN TAB [Concomitant]
     Route: 065
  2. MELPERONE [Concomitant]
     Route: 065
  3. NEBIVOLOL HCL [Concomitant]
     Route: 065
  4. PANTOPRAZOLE [Concomitant]
     Route: 065
  5. VANCOMYCIN [Suspect]
     Indication: BACTERIAL DISEASE CARRIER
     Route: 042
  6. HYDROCHLOROTHIAZIDE [Concomitant]
     Route: 065
  7. RAMIPRIL [Concomitant]
     Route: 065

REACTIONS (1)
  - LINEAR IGA DISEASE [None]
